FAERS Safety Report 18897007 (Version 1)
Quarter: 2021Q1

REPORT INFORMATION
  Report Type: Spontaneous
  Country: US (occurrence: US)
  Receive Date: 20210216
  Receipt Date: 20210216
  Transmission Date: 20210420
  Serious: No
  Sender: FDA-Public Use
  Company Number: US-JNJFOC-20210209163

PATIENT
  Age: 36 Year
  Sex: Male
  Weight: 81.72 kg

DRUGS (1)
  1. PEPCID COMPLETE [Suspect]
     Active Substance: CALCIUM CARBONATE\FAMOTIDINE\MAGNESIUM HYDROXIDE
     Indication: DYSPEPSIA
     Dosage: 1 TWICE A DAY; LAST ADMINISTRATION DATE: 01?FEB?2021
     Route: 048
     Dates: start: 20210122

REACTIONS (1)
  - Erection increased [Recovering/Resolving]

NARRATIVE: CASE EVENT DATE: 202101
